FAERS Safety Report 8059298-3 (Version None)
Quarter: 2012Q1

REPORT INFORMATION
  Report Type: 
  Country: None (occurrence: None)
  Receive Date: 20120120
  Receipt Date: 20120110
  Transmission Date: 20120608
  Serious: Yes (Other)
  Sender: FDA-Public Use
  Company Number: US-JNJFOC-20120103465

PATIENT
  Sex: Female

DRUGS (1)
  1. REMICADE [Suspect]
     Indication: PSORIASIS
     Dosage: 2 INFUSIONS TOTAL
     Route: 042

REACTIONS (5)
  - INSOMNIA [None]
  - DRUG INEFFECTIVE [None]
  - DEPRESSION [None]
  - ARTHRALGIA [None]
  - PAIN IN EXTREMITY [None]
